FAERS Safety Report 9584104 (Version 1)
Quarter: 2013Q4

REPORT INFORMATION
  Report Type: Spontaneous
  Country: US (occurrence: US)
  Receive Date: 20131002
  Receipt Date: 20131002
  Transmission Date: 20140711
  Serious: No
  Sender: FDA-Public Use
  Company Number: US-AMGEN-USASP2013050790

PATIENT
  Age: 51 Year
  Sex: Female
  Weight: 79.37 kg

DRUGS (6)
  1. ENBREL [Suspect]
     Indication: PRODUCT USED FOR UNKNOWN INDICATION
     Dosage: 50 MG/ML, QWK
     Route: 058
     Dates: start: 2005
  2. METHOTREXATE [Suspect]
     Dosage: 2.5 MG, UNK
  3. SYNTHROID [Concomitant]
     Dosage: 125 MUG, UNK
  4. BIOTIN [Concomitant]
     Dosage: 5 MG, UNK
  5. FOLIC ACID [Concomitant]
     Dosage: 1 MG, UNK
  6. OMEGA 3                            /01334101/ [Concomitant]
     Dosage: UNK

REACTIONS (5)
  - Inflammation [Unknown]
  - Salivary gland disorder [Unknown]
  - Musculoskeletal pain [Unknown]
  - Alopecia [Unknown]
  - Tendonitis [Unknown]
